FAERS Safety Report 16361287 (Version 1)
Quarter: 2019Q2

REPORT INFORMATION
  Report Type: Report from Study
  Country: BR (occurrence: BR)
  Receive Date: 20190528
  Receipt Date: 20190528
  Transmission Date: 20190711
  Serious: Yes (Death)
  Sender: FDA-Public Use
  Company Number: PHHY2019BR121358

PATIENT
  Sex: Male

DRUGS (1)
  1. DIOVAN [Suspect]
     Active Substance: VALSARTAN
     Indication: PRODUCT USED FOR UNKNOWN INDICATION
     Dosage: 320 MG, (ABOUT 10 YEARS AGO)
     Route: 048

REACTIONS (3)
  - Pancreatic carcinoma [Fatal]
  - Sepsis [Fatal]
  - Hepatic cancer metastatic [Fatal]
